FAERS Safety Report 20707553 (Version 2)
Quarter: 2022Q2

REPORT INFORMATION
  Report Type: Spontaneous
  Country: DE (occurrence: DE)
  Receive Date: 20220413
  Receipt Date: 20220426
  Transmission Date: 20220721
  Serious: Yes (Other)
  Sender: FDA-Public Use
  Company Number: DE-TEVA-2022-DE-2025905

PATIENT
  Age: 30 Year
  Sex: Male
  Weight: 67 kg

DRUGS (6)
  1. DOCETAXEL [Suspect]
     Active Substance: DOCETAXEL
     Indication: Adenocarcinoma gastric
     Dosage: TREATMENT GIVEN IN 6 CYCLE, 50 MG/2 TWICE IN A WEEK
     Route: 065
  2. FLUOROURACIL [Suspect]
     Active Substance: FLUOROURACIL
     Indication: Adenocarcinoma gastric
     Dosage: TREATMENT GIVEN IN 6 CYCLE, 2400 MG/M2
     Route: 041
  3. OXALIPLATIN [Suspect]
     Active Substance: OXALIPLATIN
     Indication: Adenocarcinoma gastric
     Dosage: TREATMENT GIVEN IN 6 CYCLE, 85 MG/M2
     Route: 065
  4. TRASTUZUMAB [Suspect]
     Active Substance: TRASTUZUMAB
     Indication: Adenocarcinoma gastric
     Dosage: TREATMENT GIVEN IN 6 CYCLE, 4 MG/KG
     Route: 065
  5. LEUCOVORIN [Suspect]
     Active Substance: LEUCOVORIN
     Indication: Adenocarcinoma gastric
     Dosage: TREATMENT GIVEN IN 6 CYCLE, 200 MG/M2
     Route: 065
  6. RASBURICASE [Suspect]
     Active Substance: RASBURICASE
     Indication: Product used for unknown indication
     Route: 065

REACTIONS (7)
  - Skin reaction [Unknown]
  - Hepatic function abnormal [Unknown]
  - Ascites [Recovered/Resolved]
  - Pleural effusion [Recovered/Resolved]
  - Haematotoxicity [Unknown]
  - Onycholysis [Unknown]
  - Paronychia [Unknown]
